FAERS Safety Report 20826121 (Version 1)
Quarter: 2022Q2

REPORT INFORMATION
  Report Type: Spontaneous
  Country: IT (occurrence: IT)
  Receive Date: 20220513
  Receipt Date: 20220513
  Transmission Date: 20220721
  Serious: Yes (Life-Threatening, Hospitalization, Other)
  Sender: FDA-Public Use
  Company Number: IT-SLATE RUN PHARMACEUTICALS-22IT001088

PATIENT

DRUGS (6)
  1. VANCOMYCIN HYDROCHLORIDE [Suspect]
     Active Substance: VANCOMYCIN HYDROCHLORIDE
     Indication: Maternal exposure timing unspecified
     Dosage: UNK
  2. UNSPECIFIED INGREDIENT [Concomitant]
     Active Substance: UNSPECIFIED INGREDIENT
     Indication: Maternal exposure timing unspecified
  3. ACETAMINOPHEN [Concomitant]
     Active Substance: ACETAMINOPHEN
     Indication: Maternal exposure timing unspecified
  4. DEXAMETHASONE [Concomitant]
     Active Substance: DEXAMETHASONE
     Indication: Maternal exposure timing unspecified
  5. OXACILLIN [Concomitant]
     Active Substance: OXACILLIN SODIUM
     Indication: Maternal exposure timing unspecified
  6. PIPERACILLIN SODIUM\TAZOBACTAM SODIUM [Concomitant]
     Active Substance: PIPERACILLIN SODIUM\TAZOBACTAM SODIUM
     Indication: Maternal exposure timing unspecified

REACTIONS (5)
  - Neonatal hypoxia [Recovered/Resolved]
  - Premature baby [Recovered/Resolved]
  - Apgar score low [Recovered/Resolved]
  - International normalised ratio increased [Recovered/Resolved]
  - Foetal exposure during pregnancy [Recovered/Resolved]
